FAERS Safety Report 10587839 (Version 1)
Quarter: 2014Q4

REPORT INFORMATION
  Report Type: Spontaneous
  Country: CH (occurrence: CH)
  Receive Date: 20141117
  Receipt Date: 20141117
  Transmission Date: 20150529
  Serious: Yes (Hospitalization, Other)
  Sender: FDA-Public Use
  Company Number: CH-PFIZER INC-2014311391

PATIENT
  Age: 85 Year
  Sex: Male
  Weight: 89 kg

DRUGS (6)
  1. CELEBREX [Suspect]
     Active Substance: CELECOXIB
     Indication: METASTATIC PAIN
     Dosage: 200 MG, 1X/DAY
     Route: 048
     Dates: start: 201407, end: 20140920
  2. ACETYLSALICYLIC ACID [Interacting]
     Active Substance: ASPIRIN
     Indication: CAROTID ARTERY INSUFFICIENCY
     Dosage: 100 MG, 1X/DAY
     Route: 048
     Dates: end: 20140920
  3. VITAMIN D [Concomitant]
     Active Substance: CHOLECALCIFEROL
     Dosage: UNK
     Dates: start: 20140905
  4. PREDNISONE. [Interacting]
     Active Substance: PREDNISONE
     Indication: PROSTATE CANCER
     Dosage: 10 MG, 1X/DAY
     Route: 048
     Dates: start: 20140903, end: 20140920
  5. XGEVA [Suspect]
     Active Substance: DENOSUMAB
     Indication: METASTASES TO BONE
     Dosage: 120 MG, SINGLE (1 DOSE TOTAL)
     Route: 058
     Dates: start: 20140905, end: 20140905
  6. TAXOTERE [Concomitant]
     Active Substance: DOCETAXEL
     Indication: PROSTATE CANCER
     Dosage: UNK
     Route: 042
     Dates: start: 20140905, end: 20140905

REACTIONS (7)
  - Medication monitoring error [Unknown]
  - Drug interaction [Unknown]
  - Hypocalcaemia [Recovered/Resolved]
  - Haemorrhagic anaemia [Recovering/Resolving]
  - Electrocardiogram QT prolonged [Unknown]
  - Duodenal ulcer haemorrhage [Recovered/Resolved]
  - Melaena [Recovered/Resolved]

NARRATIVE: CASE EVENT DATE: 20140906
